FAERS Safety Report 5615312-3 (Version None)
Quarter: 2008Q1

REPORT INFORMATION
  Report Type: 
  Country: None (occurrence: None)
  Receive Date: 20080204
  Receipt Date: 20080204
  Transmission Date: 20080703
  Serious: Yes (Hospitalization)
  Sender: FDA-Public Use
  Company Number: None

PATIENT
  Age: 86 Year
  Sex: Male
  Weight: 81 kg

DRUGS (1)
  1. TAMSULOSIN HCL [Suspect]
     Indication: HYPERTENSION
     Dosage: 0.4MG EVERY DAY PO
     Route: 048
     Dates: start: 20070718, end: 20080130

REACTIONS (3)
  - FALL [None]
  - ORTHOSTATIC HYPOTENSION [None]
  - SYNCOPE [None]
